FAERS Safety Report 22151587 (Version 1)
Quarter: 2023Q1

REPORT INFORMATION
  Report Type: Spontaneous
  Country: US (occurrence: None)
  Receive Date: 20230329
  Receipt Date: 20230329
  Transmission Date: 20230418
  Serious: No
  Sender: FDA-Public Use
  Company Number: US-Merck Healthcare KGaA-9392900

PATIENT
  Sex: Male

DRUGS (1)
  1. REBIF [Suspect]
     Active Substance: INTERFERON BETA-1A
     Indication: Multiple sclerosis
     Dosage: REBIF 44 MCG/0.5ML PREFILLED SYRINGE
     Route: 058
     Dates: start: 201711

REACTIONS (2)
  - Tremor [Unknown]
  - Product administration interrupted [Unknown]
